FAERS Safety Report 7374653-2 (Version None)
Quarter: 2011Q1

REPORT INFORMATION
  Report Type: 
  Country: None (occurrence: None)
  Receive Date: 20110325
  Receipt Date: 20100617
  Transmission Date: 20110831
  Serious: No
  Sender: FDA-Public Use
  Company Number: US-MYLANLABS-2010S1010931

PATIENT
  Age: 80 Year
  Sex: Female
  Weight: 72.58 kg

DRUGS (2)
  1. FENTANYL-100 [Suspect]
     Indication: GROIN PAIN
     Dosage: CHANGED PATCHES Q3D
     Route: 062
     Dates: start: 20100601
  2. FENTANYL-100 [Suspect]
     Indication: PAIN IN EXTREMITY
     Dosage: CHANGED PATCHES Q3D
     Route: 062
     Dates: start: 20100601

REACTIONS (5)
  - DRUG INEFFECTIVE [None]
  - GROIN PAIN [None]
  - DIZZINESS [None]
  - PAIN IN EXTREMITY [None]
  - FEELING ABNORMAL [None]
